FAERS Safety Report 6159187-5 (Version None)
Quarter: 2009Q2

REPORT INFORMATION
  Report Type: 
  Country: None (occurrence: None)
  Receive Date: 20090415
  Receipt Date: 20090408
  Transmission Date: 20091009
  Serious: Yes (Hospitalization, Other)
  Sender: FDA-Public Use
  Company Number: 190921USA

PATIENT
  Age: 15 Year
  Sex: Male
  Weight: 81.6475 kg

DRUGS (2)
  1. CLARAVIS [Suspect]
     Indication: ACNE CYSTIC
     Dosage: 40 MG (1 IN 1 D), ORAL
     Route: 048
     Dates: start: 20090105, end: 20090129
  2. CORTISONE [Concomitant]

REACTIONS (12)
  - ABDOMINAL DISCOMFORT [None]
  - BENIGN INTRACRANIAL HYPERTENSION [None]
  - BLOOD PRESSURE SYSTOLIC INCREASED [None]
  - DIPLOPIA [None]
  - DIZZINESS [None]
  - EDUCATIONAL PROBLEM [None]
  - HEADACHE [None]
  - HEART RATE DECREASED [None]
  - HEART RATE IRREGULAR [None]
  - LOSS OF CONSCIOUSNESS [None]
  - PHOTOPHOBIA [None]
  - SYNCOPE [None]
